FAERS Safety Report 16540527 (Version 1)
Quarter: 2019Q3

REPORT INFORMATION
  Report Type: Spontaneous
  Country: US (occurrence: US)
  Receive Date: 20190707
  Receipt Date: 20190707
  Transmission Date: 20191004
  Serious: Yes (Life-Threatening, Other)
  Sender: FDA-Public Use
  Company Number: None

PATIENT
  Age: 8 Year
  Sex: Male
  Weight: 30.69 kg

DRUGS (3)
  1. ATOMOXETINE. [Suspect]
     Active Substance: ATOMOXETINE HYDROCHLORIDE
     Indication: ANXIETY DISORDER
     Route: 048
     Dates: start: 20180112, end: 20180118
  2. ATOMOXETINE. [Concomitant]
     Active Substance: ATOMOXETINE HYDROCHLORIDE
     Dates: start: 20180112, end: 20180118
  3. ATOMOXETINE. [Suspect]
     Active Substance: ATOMOXETINE HYDROCHLORIDE
     Indication: ATTENTION DEFICIT/HYPERACTIVITY DISORDER
     Route: 048
     Dates: start: 20180112, end: 20180118

REACTIONS (4)
  - School refusal [None]
  - Crying [None]
  - Mood swings [None]
  - Suicidal ideation [None]

NARRATIVE: CASE EVENT DATE: 20180118
